FAERS Safety Report 13943674 (Version 1)
Quarter: 2017Q3

REPORT INFORMATION
  Report Type: Spontaneous
  Country: US (occurrence: US)
  Receive Date: 20170907
  Receipt Date: 20170907
  Transmission Date: 20171128
  Serious: No
  Sender: FDA-Public Use
  Company Number: US-ROCHE-1480164

PATIENT

DRUGS (1)
  1. RITUXAN [Suspect]
     Active Substance: RITUXIMAB
     Indication: GLOMERULONEPHRITIS MEMBRANOUS
     Dosage: 1 GRAM X 2
     Route: 042

REACTIONS (4)
  - Muscle spasms [Recovered/Resolved]
  - Off label use [Unknown]
  - Blood cholesterol increased [Unknown]
  - Myalgia [Recovered/Resolved]
